FAERS Safety Report 6747499-3 (Version None)
Quarter: 2010Q2

REPORT INFORMATION
  Report Type: 
  Country: None (occurrence: None)
  Receive Date: 20100528
  Receipt Date: 20100518
  Transmission Date: 20101027
  Serious: Yes (Hospitalization)
  Sender: FDA-Public Use
  Company Number: JP-MERCK-1005USA00915

PATIENT
  Age: 77 Year
  Sex: Female
  Weight: 28 kg

DRUGS (3)
  1. FOSAMAX [Suspect]
     Indication: OSTEOPOROSIS
     Route: 048
     Dates: start: 20011201, end: 20090513
  2. WARKMIN [Concomitant]
     Indication: OSTEOPOROSIS
     Route: 048
     Dates: start: 19990104, end: 20100404
  3. DIDRONEL [Suspect]
     Indication: OSTEOPOROSIS
     Route: 048
     Dates: start: 19990104

REACTIONS (1)
  - FEMUR FRACTURE [None]
